FAERS Safety Report 5156473-2 (Version None)
Quarter: 2006Q4

REPORT INFORMATION
  Report Type: 
  Country: None (occurrence: None)
  Receive Date: 20061113
  Receipt Date: 20061031
  Transmission Date: 20070319
  Serious: Yes (Other)
  Sender: FDA-Public Use
  Company Number: 2006133989

PATIENT
  Age: 72 Year
  Sex: Male
  Weight: 122.4712 kg

DRUGS (12)
  1. LIPITOR [Suspect]
     Indication: BLOOD CHOLESTEROL INCREASED
     Dosage: 20MG (20 MG, 1 IN 1 D); 1.5 YEARS AGO -
  2. ACTOS [Concomitant]
  3. GLYBURIDE [Concomitant]
  4. METFORMIN HCL [Concomitant]
  5. COZAAR [Concomitant]
  6. ZETIA [Concomitant]
  7. ALL OTHER THERAPEUTIC PRODUCTS (ALL OTHER THERAPEUTIC PRODUCTS) [Concomitant]
  8. FUROSEMIDE [Concomitant]
  9. CALCIUM (CALCIUM) [Concomitant]
  10. VITAMIN D [Concomitant]
  11. MULTIVITAMIN [Concomitant]
  12. GLUCOSAMINE (GLUCOSAMINE) [Concomitant]

REACTIONS (4)
  - ASTHENIA [None]
  - GASTROOESOPHAGEAL REFLUX DISEASE [None]
  - MUSCLE DISORDER [None]
  - OESOPHAGEAL DISORDER [None]
